FAERS Safety Report 19682640 (Version 1)
Quarter: 2021Q3

REPORT INFORMATION
  Report Type: Spontaneous
  Country: CA (occurrence: CA)
  Receive Date: 20210811
  Receipt Date: 20210811
  Transmission Date: 20211014
  Serious: Yes (Other)
  Sender: FDA-Public Use
  Company Number: CA-TEVA-2021-CA-1939545

PATIENT
  Age: 83 Year
  Sex: Male

DRUGS (2)
  1. DEXAMETHASONE. [Concomitant]
     Active Substance: DEXAMETHASONE
     Route: 065
  2. METOPROLOL. [Suspect]
     Active Substance: METOPROLOL
     Route: 065

REACTIONS (2)
  - Abnormal dreams [Unknown]
  - Depressed mood [Unknown]
